FAERS Safety Report 6052210-8 (Version None)
Quarter: 2009Q1

REPORT INFORMATION
  Report Type: 
  Country: None (occurrence: None)
  Receive Date: 20090121
  Receipt Date: 20090106
  Transmission Date: 20090719
  Serious: Yes (Other)
  Sender: FDA-Public Use
  Company Number: 130788

PATIENT
  Age: 44 Year
  Sex: Female

DRUGS (3)
  1. DOBUTAMINE HCL [Suspect]
     Indication: HIGH FREQUENCY ABLATION
     Dosage: 10 MCG/KG/MIN, INTRAVENOUS
     Route: 042
  2. ATROPINE [Suspect]
     Indication: HIGH FREQUENCY ABLATION
     Dosage: 1 MG, INTRAVENOUS
     Route: 042
  3. SODIUM CHLORIDE [Concomitant]

REACTIONS (6)
  - AKINESIA [None]
  - CARDIAC ENZYMES INCREASED [None]
  - HYPOTENSION [None]
  - SINUS TACHYCARDIA [None]
  - STRESS CARDIOMYOPATHY [None]
  - TROPONIN T INCREASED [None]
